FAERS Safety Report 9879278 (Version 1)
Quarter: 2014Q1

REPORT INFORMATION
  Report Type: Spontaneous
  Country: CH (occurrence: CH)
  Receive Date: 20140206
  Receipt Date: 20140206
  Transmission Date: 20141002
  Serious: Yes (Hospitalization, Other)
  Sender: FDA-Public Use
  Company Number: CH-ASTRAZENECA-2014SE07166

PATIENT
  Age: 0 Day
  Sex: Female

DRUGS (4)
  1. SEROQUEL [Suspect]
     Indication: BIPOLAR DISORDER
     Route: 064
  2. LEXOTANIL [Suspect]
     Indication: BIPOLAR DISORDER
     Route: 064
     Dates: end: 20121015
  3. CYMBALTA [Suspect]
     Indication: BIPOLAR DISORDER
     Route: 064
  4. CANNABIS\CANNABIS SATIVA L [Concomitant]

REACTIONS (2)
  - Foetal growth restriction [Recovered/Resolved]
  - Tremor [Recovered/Resolved]
